FAERS Safety Report 14178343 (Version 3)
Quarter: 2025Q3

REPORT INFORMATION
  Report Type: Spontaneous
  Country: JP (occurrence: JP)
  Receive Date: 20171110
  Receipt Date: 20250807
  Transmission Date: 20251021
  Serious: Yes (Other)
  Sender: AMGEN
  Company Number: JP-KYOWAKIRIN-2017JPN-ESP000043

PATIENT
  Age: 65 Year
  Sex: Female

DRUGS (3)
  1. DARBEPOETIN ALFA [Suspect]
     Active Substance: DARBEPOETIN ALFA
     Indication: Myelodysplastic syndrome with single lineage dysplasia
     Dosage: 40 MUG, QWK
     Route: 065
     Dates: start: 201503, end: 2015
  2. DARBEPOETIN ALFA [Suspect]
     Active Substance: DARBEPOETIN ALFA
     Dosage: 240 UG, QWK
     Route: 065
     Dates: start: 201507, end: 2016
  3. EPOETIN ALFA [Suspect]
     Active Substance: ERYTHROPOIETIN
     Indication: Myelodysplastic syndrome with single lineage dysplasia
     Dosage: 9000 IU, 1X/WEEK
     Route: 065
     Dates: start: 201503

REACTIONS (4)
  - Staphylococcal infection [Recovered/Resolved]
  - Haemoglobin decreased [Recovering/Resolving]
  - Drug resistance [Unknown]
  - Drug ineffective [Unknown]

NARRATIVE: CASE EVENT DATE: 20160301
